FAERS Safety Report 14284807 (Version 1)
Quarter: 2017Q4

REPORT INFORMATION
  Report Type: Spontaneous
  Country: US (occurrence: US)
  Receive Date: 20171214
  Receipt Date: 20171214
  Transmission Date: 20180321
  Serious: No
  Sender: FDA-Public Use
  Company Number: None

PATIENT
  Age: 67 Year
  Sex: Female
  Weight: 78.75 kg

DRUGS (3)
  1. PRILOSEC [Concomitant]
     Active Substance: OMEPRAZOLE MAGNESIUM
  2. GUAIFENESIN. [Concomitant]
     Active Substance: GUAIFENESIN
  3. DEFINITY [Suspect]
     Active Substance: PERFLUTREN
     Indication: ECHOCARDIOGRAM
     Dosage: 3 ML TWICE DURING TEST; INTRAVENOUS BOLUS?
     Route: 040
     Dates: start: 20171214, end: 20171214

REACTIONS (1)
  - Back pain [None]

NARRATIVE: CASE EVENT DATE: 20171214
